FAERS Safety Report 4657469-7 (Version None)
Quarter: 2005Q2

REPORT INFORMATION
  Report Type: 
  Country: None (occurrence: None)
  Receive Date: 20050509
  Receipt Date: 20050509
  Transmission Date: 20051028
  Serious: No
  Sender: FDA-Public Use
  Company Number: None

PATIENT
  Age: 32 Year
  Sex: Female
  Weight: 65.7716 kg

DRUGS (4)
  1. PROZAC [Suspect]
     Indication: ANXIETY
     Dosage: 1 TABLET 2X A DAY ORAL
     Route: 048
     Dates: start: 20050228, end: 20050323
  2. PROZAC [Suspect]
     Indication: DEPRESSION
     Dosage: 1 TABLET 2X A DAY ORAL
     Route: 048
     Dates: start: 20050228, end: 20050323
  3. AVONEX [Concomitant]
  4. TYLENOL (CAPLET) [Concomitant]

REACTIONS (8)
  - ARTHRALGIA [None]
  - EYE SWELLING [None]
  - HEART RATE IRREGULAR [None]
  - JOINT SWELLING [None]
  - OEDEMA PERIPHERAL [None]
  - PRURITUS [None]
  - SWELLING FACE [None]
  - URTICARIA [None]
